FAERS Safety Report 21438638 (Version 1)
Quarter: 2022Q4

REPORT INFORMATION
  Report Type: Spontaneous
  Country: US (occurrence: US)
  Receive Date: 20221011
  Receipt Date: 20221011
  Transmission Date: 20230113
  Serious: Yes (Life-Threatening, Hospitalization, Other)
  Sender: FDA-Public Use
  Company Number: US-ADAREPHARM-2022-US-000038

PATIENT
  Age: 3 Month
  Sex: Female

DRUGS (1)
  1. PROPRANOLOL [Suspect]
     Active Substance: PROPRANOLOL HYDROCHLORIDE
     Indication: Infantile haemangioma

REACTIONS (4)
  - Respiratory failure [Recovering/Resolving]
  - Product use in unapproved indication [Not Recovered/Not Resolved]
  - Pulmonary oedema [Recovering/Resolving]
  - Right ventricular systolic pressure increased [Recovering/Resolving]
